FAERS Safety Report 9447424 (Version 1)
Quarter: 2013Q3

REPORT INFORMATION
  Report Type: Report from Study
  Country: NL (occurrence: NL)
  Receive Date: 20130808
  Receipt Date: 20130808
  Transmission Date: 20140515
  Serious: Yes (Death)
  Sender: FDA-Public Use
  Company Number: NL-ROCHE-1258700

PATIENT
  Sex: Male

DRUGS (24)
  1. MIRCERA [Suspect]
     Indication: NEPHROGENIC ANAEMIA
     Route: 058
     Dates: start: 20090406, end: 20090728
  2. MIRCERA [Suspect]
     Route: 058
     Dates: start: 20090728, end: 20100902
  3. MIRCERA [Suspect]
     Route: 058
     Dates: start: 20100902, end: 20120302
  4. MIRCERA [Suspect]
     Route: 058
     Dates: start: 20130107, end: 20130405
  5. MIRCERA [Suspect]
     Route: 058
     Dates: start: 20130405, end: 20130530
  6. MIRCERA [Suspect]
     Route: 058
     Dates: start: 20130530, end: 20130618
  7. NEORECORMON [Suspect]
     Indication: NEPHROGENIC ANAEMIA
     Route: 058
     Dates: start: 20120302, end: 20130107
  8. ACENOCOUMAROL [Concomitant]
     Route: 048
  9. ALPHACALCIDOL [Concomitant]
     Route: 048
  10. BUMETANIDE [Concomitant]
     Route: 048
  11. CALCIUM CARBONATE/CHOLECALCIFEROL [Concomitant]
     Dosage: 1.25G/400IU
     Route: 048
  12. DILTIAZEM [Concomitant]
     Route: 048
  13. FERROFUMARAT [Concomitant]
     Route: 048
  14. GLICLAZIDE [Concomitant]
     Route: 048
  15. MACROGOL [Concomitant]
     Route: 048
  16. MAGNESIUMOXID [Concomitant]
     Route: 048
  17. METOPROLOL SUCCINATE [Concomitant]
     Route: 048
  18. NADROPARINE [Concomitant]
  19. PANTOPRAZOLE [Concomitant]
     Route: 048
  20. PRAVASTATINE [Concomitant]
     Route: 048
  21. PREDNISOLONE [Concomitant]
     Route: 048
  22. RISEDRONIC ACID [Concomitant]
     Route: 048
  23. TIOTROPIUM [Concomitant]
     Route: 055
  24. TOLBUTAMIDE [Concomitant]
     Route: 048

REACTIONS (1)
  - Death [Fatal]
